FAERS Safety Report 16834193 (Version 1)
Quarter: 2019Q3

REPORT INFORMATION
  Report Type: Spontaneous
  Country: US (occurrence: US)
  Receive Date: 20190920
  Receipt Date: 20190920
  Transmission Date: 20191005
  Serious: No
  Sender: FDA-Public Use
  Company Number: US-UNICHEM PHARMACEUTICALS (USA) INC-UCM201906-000226

PATIENT
  Age: 20 Year
  Sex: Female
  Weight: 52.61 kg

DRUGS (5)
  1. ABILIFY ER [Concomitant]
     Indication: PRODUCT USED FOR UNKNOWN INDICATION
  2. CLONIDINE HCL [Suspect]
     Active Substance: CLONIDINE HYDROCHLORIDE
     Dates: start: 20190603
  3. DEPAKOTE [Concomitant]
     Active Substance: DIVALPROEX SODIUM
     Indication: PRODUCT USED FOR UNKNOWN INDICATION
  4. EFFEXOR XR [Concomitant]
     Active Substance: VENLAFAXINE HYDROCHLORIDE
     Indication: PRODUCT USED FOR UNKNOWN INDICATION
  5. CLONIDINE HCL [Suspect]
     Active Substance: CLONIDINE HYDROCHLORIDE
     Indication: BIPOLAR DISORDER
     Dates: start: 201811, end: 20190603

REACTIONS (5)
  - Fatigue [Unknown]
  - Mood altered [Unknown]
  - Tremor [Recovered/Resolved]
  - Urticaria [Not Recovered/Not Resolved]
  - Drug withdrawal syndrome [Unknown]

NARRATIVE: CASE EVENT DATE: 20190613
